FAERS Safety Report 6168259-0 (Version None)
Quarter: 2009Q2

REPORT INFORMATION
  Report Type: 
  Country: None (occurrence: None)
  Receive Date: 20090423
  Receipt Date: 20090413
  Transmission Date: 20091009
  Serious: Yes (Hospitalization, Disabling, Other)
  Sender: FDA-Public Use
  Company Number: 2009AP001518

PATIENT
  Age: 55 Year
  Sex: Male

DRUGS (1)
  1. LITHIUM CARBONATE CAP [Suspect]

REACTIONS (7)
  - ABASIA [None]
  - ASTHENIA [None]
  - BIPOLAR DISORDER [None]
  - CONDITION AGGRAVATED [None]
  - COORDINATION ABNORMAL [None]
  - NEUROPATHY PERIPHERAL [None]
  - WHEELCHAIR USER [None]
